FAERS Safety Report 10417855 (Version 1)
Quarter: 2014Q2

REPORT INFORMATION
  Report Type: Spontaneous
  Country: US (occurrence: None)
  Receive Date: 20140611
  Receipt Date: 20140611
  Transmission Date: 20141212
  Serious: Yes (Hospitalization)
  Sender: FDA-Public Use
  Company Number: FK201400753

PATIENT
  Sex: Male
  Weight: 10.7 kg

DRUGS (1)
  1. VINBLASTINE SULFATE [Suspect]
     Indication: ASTROCYTOMA
     Dates: start: 20131007

REACTIONS (4)
  - Ileus [None]
  - Abdominal pain [None]
  - Constipation [None]
  - Alopecia [None]
